FAERS Safety Report 21119044 (Version 1)
Quarter: 2022Q3

REPORT INFORMATION
  Report Type: Spontaneous
  Country: US (occurrence: None)
  Receive Date: 20220721
  Receipt Date: 20220721
  Transmission Date: 20221026
  Serious: No
  Sender: FDA-Public Use
  Company Number: None

PATIENT
  Age: 72 Year
  Sex: Male
  Weight: 87.54 kg

DRUGS (4)
  1. ELTROMBOPAG [Suspect]
     Active Substance: ELTROMBOPAG
     Indication: Transient ischaemic attack
     Dosage: 1 TAB EVERY DAY PO?
     Route: 048
     Dates: start: 20211201, end: 20211214
  2. ELTROMBOPAG [Suspect]
     Active Substance: ELTROMBOPAG
     Indication: Thrombocytopenia
  3. ELTROMBOPAG [Suspect]
     Active Substance: ELTROMBOPAG
     Indication: Primary myelofibrosis
  4. ELTROMBOPAG [Suspect]
     Active Substance: ELTROMBOPAG
     Indication: Splenomegaly

REACTIONS (4)
  - Anaphylactic reaction [None]
  - Angioedema [None]
  - Dry mouth [None]
  - Tongue dry [None]

NARRATIVE: CASE EVENT DATE: 20211210
